FAERS Safety Report 18855002 (Version 1)
Quarter: 2021Q1

REPORT INFORMATION
  Report Type: Spontaneous
  Country: US (occurrence: US)
  Receive Date: 20210206
  Receipt Date: 20210206
  Transmission Date: 20210420
  Serious: No
  Sender: FDA-Public Use
  Company Number: US-LUPIN PHARMACEUTICALS INC.-2021-01217

PATIENT
  Age: 17 Year
  Sex: Male
  Weight: 90.7 kg

DRUGS (4)
  1. DESLORATADINE TABLETS, 5 MG [Suspect]
     Active Substance: DESLORATADINE
     Indication: HYPERSENSITIVITY
     Dosage: 5 MILLIGRAM, QD
     Route: 048
     Dates: start: 202101
  2. ALBUTEROL SULFATE. [Concomitant]
     Active Substance: ALBUTEROL SULFATE
     Indication: ASTHMA EXERCISE INDUCED
     Dosage: UNK UNK, PRN (AS NEEDED)
     Route: 065
  3. SINGULAIR [Concomitant]
     Active Substance: MONTELUKAST SODIUM
     Indication: ASTHMA
     Dosage: UNK UNK, QD
     Route: 065
  4. GLYCOPYRROLATE [GLYCOPYRRONIUM] [Concomitant]
     Active Substance: GLYCOPYRRONIUM
     Indication: PRODUCT USED FOR UNKNOWN INDICATION
     Dosage: UNK UNK, QD (AT NIGHT)
     Route: 065

REACTIONS (5)
  - Lip dry [Unknown]
  - Rash [Unknown]
  - Rash erythematous [Unknown]
  - Cheilitis [Unknown]
  - Dry mouth [Unknown]

NARRATIVE: CASE EVENT DATE: 202101
